FAERS Safety Report 6883100-6 (Version None)
Quarter: 2010Q3

REPORT INFORMATION
  Report Type: 
  Country: None (occurrence: None)
  Receive Date: 20100729
  Receipt Date: 20100720
  Transmission Date: 20110219
  Serious: Yes (Other)
  Sender: FDA-Public Use
  Company Number: US-JNJFOC-20100706922

PATIENT
  Sex: Female
  Weight: 104.78 kg

DRUGS (6)
  1. RISPERDAL [Suspect]
     Indication: PRODUCT USED FOR UNKNOWN INDICATION
     Route: 065
  2. SIMCOR [Suspect]
     Indication: LOW DENSITY LIPOPROTEIN INCREASED
     Route: 065
  3. CLONAZEPAM [Concomitant]
  4. ATORVASTATIN [Concomitant]
     Indication: BLOOD CHOLESTEROL INCREASED
  5. ESTRADIOL [Concomitant]
     Indication: HYSTERECTOMY
  6. LAMOTRIGINE [Concomitant]
     Indication: DEPRESSION

REACTIONS (10)
  - CARDIAC VENTRICULAR DISORDER [None]
  - CHEST PAIN [None]
  - FALL [None]
  - INSOMNIA [None]
  - JOINT SWELLING [None]
  - MUSCLE SPASMS [None]
  - OEDEMA PERIPHERAL [None]
  - PHARYNGEAL OEDEMA [None]
  - SWOLLEN TONGUE [None]
  - TONGUE DISORDER [None]
